FAERS Safety Report 4915029-4 (Version None)
Quarter: 2006Q1

REPORT INFORMATION
  Report Type: 
  Country: None (occurrence: None)
  Receive Date: 20060217
  Receipt Date: 20060209
  Transmission Date: 20060701
  Serious: Yes (Death)
  Sender: FDA-Public Use
  Company Number: JP-JNJFOC-20050706278

PATIENT
  Sex: Male
  Weight: 42 kg

DRUGS (15)
  1. REMICADE [Suspect]
     Indication: CROHN'S DISEASE
     Route: 042
  2. SANDIMMUNE [Suspect]
     Indication: CROHN'S DISEASE
     Route: 048
  3. PREDONINE [Suspect]
     Indication: CROHN'S DISEASE
     Dosage: DOSE REDUCED FROM 14 MG
     Route: 048
  4. PREDNISOLONE ACETATE OPHTHALMIC SUSPENSION/DROPS [Suspect]
     Indication: CROHN'S DISEASE
     Dosage: DOSE REDUCED FROM 14 MG
     Route: 042
  5. PENTASA [Concomitant]
     Indication: CROHN'S DISEASE
     Route: 048
  6. FOLIAMIN [Concomitant]
     Route: 048
  7. ALLOZYM [Concomitant]
     Route: 048
  8. TAKEPRON [Concomitant]
     Route: 048
  9. ALFAROL [Concomitant]
     Route: 048
  10. CLOSTRIDIUM BUTYRICUM [Concomitant]
     Dosage: DOSE 3DF
     Route: 048
  11. SELBEX [Concomitant]
     Route: 048
  12. HICEE [Concomitant]
     Route: 048
  13. LASIX [Concomitant]
     Route: 048
  14. DAI-KENCHU-TO [Concomitant]
     Dosage: DOSE 6DF
     Route: 048
  15. AMOBAN [Concomitant]
     Route: 048

REACTIONS (7)
  - ABDOMINAL DISTENSION [None]
  - CROHN'S DISEASE [None]
  - ILEAL ULCER [None]
  - ILEUS [None]
  - RENAL FAILURE [None]
  - UPPER GASTROINTESTINAL HAEMORRHAGE [None]
  - VOMITING [None]
